FAERS Safety Report 6432429-4 (Version None)
Quarter: 2009Q4

REPORT INFORMATION
  Report Type: 
  Country: None (occurrence: None)
  Receive Date: 20091109
  Receipt Date: 20091102
  Transmission Date: 20100525
  Serious: No
  Sender: FDA-Public Use
  Company Number: DK-AMGEN-UK370095

PATIENT
  Age: 76 Year
  Sex: Male

DRUGS (4)
  1. MIMPARA [Suspect]
     Indication: PARATHYROID TUMOUR MALIGNANT
     Route: 065
     Dates: start: 20071214, end: 20080205
  2. PREDNISOLONE [Concomitant]
     Route: 065
     Dates: start: 20080121, end: 20080128
  3. ZOLEDRONIC ACID [Concomitant]
     Route: 042
     Dates: start: 20080111, end: 20080206
  4. PAMIDRONATE DISODIUM [Concomitant]
     Route: 065

REACTIONS (1)
  - DRUG INEFFECTIVE [None]
